FAERS Safety Report 6958246-4 (Version None)
Quarter: 2010Q3

REPORT INFORMATION
  Report Type: 
  Country: None (occurrence: None)
  Receive Date: 20100831
  Receipt Date: 20100823
  Transmission Date: 20110219
  Serious: Yes (Other)
  Sender: FDA-Public Use
  Company Number: CO-JNJFOC-20100808087

PATIENT
  Age: 27 Year
  Sex: Male

DRUGS (7)
  1. REMICADE [Suspect]
     Indication: SPONDYLITIS
     Route: 042
  2. HYDROCORTISONE [Concomitant]
     Indication: PREMEDICATION
  3. ACETAMINOPHEN [Concomitant]
     Indication: PREMEDICATION
  4. METHOTREXATE [Concomitant]
  5. OMEPRAZOLE [Concomitant]
  6. FOLIC ACID [Concomitant]
  7. SULFASALAZINE [Concomitant]

REACTIONS (1)
  - TUBERCULOSIS [None]
